FAERS Safety Report 9277765 (Version 2)
Quarter: 2013Q2

REPORT INFORMATION
  Report Type: Report from Study
  Country: HU (occurrence: HU)
  Receive Date: 20130508
  Receipt Date: 20130528
  Transmission Date: 20140414
  Serious: Yes (Hospitalization)
  Sender: FDA-Public Use
  Company Number: PHHO2013HU006084

PATIENT
  Sex: 0

DRUGS (2)
  1. EVEROLIMUS [Suspect]
     Indication: HEPATOCELLULAR CARCINOMA
     Dosage: 10 MG, QD
     Route: 048
     Dates: start: 20130111, end: 20130416
  2. SORAFENIB [Suspect]
     Indication: HEPATOCELLULAR CARCINOMA
     Dosage: 800 MG, DAILY
     Route: 048
     Dates: start: 20130111, end: 20130415

REACTIONS (1)
  - Haemorrhagic erosive gastritis [Recovered/Resolved]
